FAERS Safety Report 7792609-2 (Version None)
Quarter: 2011Q4

REPORT INFORMATION
  Report Type: 
  Country: None (occurrence: None)
  Receive Date: 20111003
  Receipt Date: 20110922
  Transmission Date: 20120403
  Serious: Yes (Hospitalization)
  Sender: FDA-Public Use
  Company Number: BR-ASTRAZENECA-2011SE57547

PATIENT
  Age: 84 Year
  Sex: Male
  Weight: 76 kg

DRUGS (7)
  1. CRESTOR [Suspect]
     Route: 048
     Dates: start: 20110901
  2. STUGERON [Concomitant]
     Indication: LABYRINTHITIS
     Dosage: DAILY
     Route: 048
     Dates: start: 20110823
  3. DRAMIN B6 [Concomitant]
     Indication: LABYRINTHITIS
     Dosage: ONCE DAILY
     Route: 048
     Dates: start: 20110823
  4. TAXOTERE [Concomitant]
     Indication: BONE NEOPLASM MALIGNANT
     Dosage: CYCLIC
     Route: 042
     Dates: start: 20010101
  5. CRESTOR [Suspect]
     Indication: HYPERCHOLESTEROLAEMIA
     Route: 048
     Dates: start: 20110823, end: 20110901
  6. COUMADIN [Concomitant]
     Indication: ATRIAL FIBRILLATION
     Route: 048
     Dates: start: 20110823, end: 20110101
  7. COUMADIN [Concomitant]
     Route: 048
     Dates: start: 20110101, end: 20110914

REACTIONS (1)
  - LABYRINTHITIS [None]
